FAERS Safety Report 5208965-5 (Version None)
Quarter: 2007Q1

REPORT INFORMATION
  Report Type: 
  Country: None (occurrence: None)
  Receive Date: 20070116
  Receipt Date: 20070108
  Transmission Date: 20070707
  Serious: Yes (Hospitalization)
  Sender: FDA-Public Use
  Company Number: FR-AVENTIS-200614481FR

PATIENT
  Age: 74 Year
  Sex: Female

DRUGS (13)
  1. LASIX [Suspect]
     Route: 048
  2. CORDARONE [Suspect]
     Route: 048
  3. ALLOPURINOL TAB [Suspect]
     Route: 048
     Dates: start: 20060601, end: 20060922
  4. NEBCIN [Suspect]
     Dates: start: 20060710, end: 20060712
  5. PREVISCAN                          /00789001/ [Suspect]
     Route: 048
  6. GENTAMICIN [Suspect]
     Dates: start: 20060713, end: 20060715
  7. ALDACTONE [Concomitant]
     Route: 048
  8. ADANCOR [Concomitant]
     Route: 048
  9. CORVASAL                           /00547101/ [Concomitant]
     Route: 048
  10. IMOVANE [Concomitant]
     Route: 048
  11. NEXIUM [Concomitant]
     Route: 048
  12. SEREVENT [Concomitant]
     Route: 055
  13. MIXTARD                            /00634701/ [Concomitant]
     Dosage: DOSE: 30-24
     Route: 058

REACTIONS (3)
  - ECZEMA [None]
  - PRURITUS [None]
  - RASH ERYTHEMATOUS [None]
